FAERS Safety Report 24954012 (Version 1)
Quarter: 2025Q1

REPORT INFORMATION
  Report Type: Spontaneous
  Country: CN (occurrence: CN)
  Receive Date: 20250211
  Receipt Date: 20250211
  Transmission Date: 20250409
  Serious: Yes (Life-Threatening, Other)
  Sender: QILU PHARMACEUTICAL (HAINAN) CO., LTD.
  Company Number: CN-QILU PHARMACEUTICAL (HAINAN) CO.  LTD.-QLH-000032-2025

PATIENT
  Age: 65 Year
  Sex: Male

DRUGS (8)
  1. OXALIPLATIN [Suspect]
     Active Substance: OXALIPLATIN
     Indication: Angiocentric lymphoma stage IV
     Dosage: 170 MG ON DAY 1 PER EVERY 3 WEEKS (FIRST TO THIRD CYCLE)
     Route: 065
     Dates: start: 202204, end: 2022
  2. OXALIPLATIN [Suspect]
     Active Substance: OXALIPLATIN
     Route: 065
     Dates: start: 202207, end: 2022
  3. PEGASPARGASE [Concomitant]
     Active Substance: PEGASPARGASE
     Dosage: 3750 IU ON DAY 1 PER EVERY 3 WEEKS (FIRST TO THIRD CYCLE)
     Route: 065
     Dates: start: 202204, end: 2022
  4. PEGASPARGASE [Concomitant]
     Active Substance: PEGASPARGASE
     Route: 065
     Dates: start: 20220727, end: 2022
  5. GEMCITABINE [Concomitant]
     Active Substance: GEMCITABINE
     Dosage: 1800 MG ON DAY 1 PER EVERY 3 WEEKS (FIRST TO THIRD CYCLE)
     Route: 065
     Dates: start: 202204, end: 2022
  6. GEMCITABINE [Concomitant]
     Active Substance: GEMCITABINE
     Route: 065
     Dates: start: 202207, end: 2022
  7. TORIPALIMAB [Concomitant]
     Active Substance: TORIPALIMAB
     Dosage: 240 MG ON DAY 0 PER EVERY 3 WEEKS (FIRST TO THIRD CYCLE)
     Route: 065
     Dates: start: 202204, end: 2022
  8. TORIPALIMAB [Concomitant]
     Active Substance: TORIPALIMAB
     Route: 065
     Dates: start: 202207

REACTIONS (2)
  - Cytokine release syndrome [Recovered/Resolved]
  - Drug effective for unapproved indication [Unknown]

NARRATIVE: CASE EVENT DATE: 20220101
